FAERS Safety Report 13018096 (Version 1)
Quarter: 2016Q4

REPORT INFORMATION
  Report Type: Spontaneous
  Country: US (occurrence: US)
  Receive Date: 20161212
  Receipt Date: 20161212
  Transmission Date: 20170207
  Serious: Yes (Other)
  Sender: FDA-Public Use
  Company Number: US-JUBILANT CADISTA PHARMACEUTICALS-2016JUB00411

PATIENT
  Age: 64 Year
  Sex: Male

DRUGS (1)
  1. PREDNISONE. [Suspect]
     Active Substance: PREDNISONE
     Indication: CHRONIC OBSTRUCTIVE PULMONARY DISEASE
     Route: 065

REACTIONS (5)
  - Immunosuppression [Unknown]
  - Oesophageal ulcer [Recovered/Resolved]
  - Strongyloidiasis [Recovered/Resolved]
  - Sepsis [Unknown]
  - Small intestinal haemorrhage [Recovered/Resolved]
